FAERS Safety Report 12296258 (Version 1)
Quarter: 2016Q2

REPORT INFORMATION
  Report Type: Spontaneous
  Country: US (occurrence: US)
  Receive Date: 20160422
  Receipt Date: 20160422
  Transmission Date: 20160815
  Serious: No
  Sender: FDA-Public Use
  Company Number: US-PURDUE-USA-2016-0129974

PATIENT
  Age: 92 Year
  Sex: Female

DRUGS (2)
  1. OXYCONTIN [Suspect]
     Active Substance: OXYCODONE HYDROCHLORIDE
     Indication: ANALGESIC THERAPY
     Route: 048
  2. MORPHINE SULFATE (SIMILAR TO NDA 19-516) [Suspect]
     Active Substance: MORPHINE SULFATE
     Indication: ANALGESIC THERAPY
     Route: 042

REACTIONS (6)
  - Musculoskeletal discomfort [Recovered/Resolved]
  - Discomfort [Recovered/Resolved]
  - Inadequate analgesia [Recovered/Resolved]
  - Drug withdrawal syndrome [Recovered/Resolved]
  - Muscle twitching [Recovered/Resolved]
  - Restlessness [Recovered/Resolved]
